FAERS Safety Report 7672683-4 (Version None)
Quarter: 2011Q3

REPORT INFORMATION
  Report Type: 
  Country: None (occurrence: None)
  Receive Date: 20110804
  Receipt Date: 20110723
  Transmission Date: 20111222
  Serious: Yes (Other)
  Sender: FDA-Public Use
  Company Number: 2011AP001582

PATIENT
  Age: 17 Year
  Sex: Male

DRUGS (7)
  1. METHOTRIMEPRAZINE [Concomitant]
  2. QUETIAPINE FUMARATE [Suspect]
     Indication: PRODUCT USED FOR UNKNOWN INDICATION
     Dosage: 100 MG, QD; 200 MG, QD; 400 MG, QD;
  3. FLUOXETINE [Concomitant]
  4. PAROXETINE HCL [Concomitant]
  5. DIAZEPAM [Concomitant]
  6. SERTRALINE HYDROCHLORIDE [Suspect]
     Indication: PRODUCT USED FOR UNKNOWN INDICATION
     Dosage: 100 MG, PM; 50 MG, AM;
  7. LORAZEPAM [Concomitant]

REACTIONS (3)
  - DYSKINESIA [None]
  - DRUG INTERACTION [None]
  - SPEECH DISORDER [None]
